FAERS Safety Report 8541308-8 (Version None)
Quarter: 2012Q3

REPORT INFORMATION
  Report Type: 
  Country: None (occurrence: None)
  Receive Date: 20120726
  Receipt Date: 20120720
  Transmission Date: 20120928
  Serious: Yes (Other)
  Sender: FDA-Public Use
  Company Number: JP-PFIZER INC-2012161877

PATIENT
  Age: 79 Year
  Sex: Female

DRUGS (4)
  1. LANSOPRAZOLE [Concomitant]
     Dosage: UNK
     Route: 048
  2. LYRICA [Suspect]
     Indication: BACK PAIN
     Dosage: 25 MG, 1X/DAY
     Route: 048
     Dates: start: 20120519
  3. CANDESARTAN CILEXETIL [Concomitant]
     Dosage: UNK
     Route: 048
  4. BONOTEO [Concomitant]
     Dosage: UNK
     Route: 048

REACTIONS (2)
  - SOMNOLENCE [None]
  - LOSS OF CONTROL OF LEGS [None]
